FAERS Safety Report 15721904 (Version 1)
Quarter: 2018Q4

REPORT INFORMATION
  Report Type: Spontaneous
  Country: AU (occurrence: AU)
  Receive Date: 20181214
  Receipt Date: 20181214
  Transmission Date: 20190205
  Serious: Yes (Other)
  Sender: FDA-Public Use
  Company Number: AU-TEVA-2018-AU-984144

PATIENT
  Sex: Female

DRUGS (9)
  1. FLUVOXAMINE [Concomitant]
     Active Substance: FLUVOXAMINE
  2. ZUCLOPENTHIXOL [Concomitant]
     Active Substance: ZUCLOPENTHIXOL
  3. COLOXYL WITH SENNA [Suspect]
     Active Substance: DOCUSATE\SENNOSIDES
     Route: 065
  4. PARACETAMOL [Concomitant]
     Active Substance: ACETAMINOPHEN
  5. QUETIAPINE. [Suspect]
     Active Substance: QUETIAPINE
     Dosage: DOSAGE UNKNOWN
     Route: 065
  6. METFORMIN [Suspect]
     Active Substance: METFORMIN HYDROCHLORIDE
     Route: 065
  7. CLOZARIL [Suspect]
     Active Substance: CLOZAPINE
     Route: 065
  8. SODIUM VALPROATE [Concomitant]
     Active Substance: VALPROATE SODIUM
  9. PANTOPRAZOLE [Suspect]
     Active Substance: PANTOPRAZOLE
     Route: 065

REACTIONS (13)
  - Anaemia [Unknown]
  - Mental status changes [Unknown]
  - Leukopenia [Unknown]
  - Gamma-glutamyltransferase increased [Unknown]
  - Thrombocytopenia [Unknown]
  - Overdose [Unknown]
  - Generalised tonic-clonic seizure [Unknown]
  - Alanine aminotransferase increased [Unknown]
  - Neutropenia [Unknown]
  - Aspartate aminotransferase increased [Unknown]
  - Blood alkaline phosphatase increased [Unknown]
  - Drug effect decreased [Unknown]
  - Weight increased [Unknown]
